FAERS Safety Report 18688777 (Version 1)
Quarter: 2020Q4

REPORT INFORMATION
  Report Type: Spontaneous
  Country: RU (occurrence: RU)
  Receive Date: 20201231
  Receipt Date: 20201231
  Transmission Date: 20210114
  Serious: Yes (Other)
  Sender: FDA-Public Use
  Company Number: RU-AMGEN-RUSSP2020209100

PATIENT
  Age: 30 Year
  Sex: Female
  Weight: 40 kg

DRUGS (7)
  1. CINACALCET HCL [Suspect]
     Active Substance: CINACALCET HYDROCHLORIDE
     Indication: HYPERPARATHYROIDISM PRIMARY
     Dosage: 60 MILLIGRAM, QD
     Route: 065
     Dates: start: 2019
  2. CALCIUM [Concomitant]
     Active Substance: CALCIUM
     Dosage: UNK
  3. PROLIA [Suspect]
     Active Substance: DENOSUMAB
     Indication: HYPERCALCAEMIA
  4. CALCIUM CARBONATE. [Concomitant]
     Active Substance: CALCIUM CARBONATE
     Indication: HYPOCALCAEMIA
     Dosage: 3000 MILLIGRAM, QD
     Route: 065
  5. PROLIA [Suspect]
     Active Substance: DENOSUMAB
     Indication: HYPERCALCAEMIA
     Dosage: 60 MILLIGRAM
     Route: 058
     Dates: start: 2019
  6. DARBEPOETIN ALFA [Suspect]
     Active Substance: DARBEPOETIN ALFA
     Indication: ANAEMIA
     Dosage: 2000 INTERNATIONAL UNIT; 3 TIMES A WEAK
     Route: 058
  7. VITAMIN D [ERGOCALCIFEROL] [Concomitant]
     Active Substance: ERGOCALCIFEROL
     Dosage: UNK

REACTIONS (10)
  - Osteoporosis [Unknown]
  - Hypochromic anaemia [Unknown]
  - Ovarian cyst [Unknown]
  - Nephrolithiasis [Unknown]
  - Hypocalcaemia [Recovered/Resolved]
  - High turnover osteopathy [Unknown]
  - Adenomyosis [Unknown]
  - Off label use [Unknown]
  - Splenomegaly [Unknown]
  - Lithiasis [Unknown]
